FAERS Safety Report 12539611 (Version 1)
Quarter: 2016Q3

REPORT INFORMATION
  Report Type: Spontaneous
  Country: JP (occurrence: JP)
  Receive Date: 20160708
  Receipt Date: 20160708
  Transmission Date: 20161109
  Serious: Yes (Hospitalization, Other)
  Sender: FDA-Public Use
  Company Number: JP-SUN PHARMACEUTICAL INDUSTRIES LTD-2016RR-119825

PATIENT
  Age: 71 Year
  Sex: Male
  Weight: 55 kg

DRUGS (6)
  1. CAPECITABINE. [Suspect]
     Active Substance: CAPECITABINE
     Indication: GASTRIC CANCER STAGE III
     Dosage: 3000 MG, DAILY, ON DAY 1-14
     Route: 065
     Dates: start: 20110614
  2. PACLITAXEL. [Suspect]
     Active Substance: PACLITAXEL
     Indication: GASTRIC CANCER STAGE III
     Dosage: 80 MG/M2, ON DAY 1,8, 15, Q4WKS
     Route: 065
     Dates: start: 20091212
  3. DOCETAXEL. [Suspect]
     Active Substance: DOCETAXEL
     Indication: GASTRIC CANCER STAGE III
     Dosage: 60 MG/M2, Q3WKS
     Route: 065
     Dates: start: 20100311
  4. CISPLATIN. [Suspect]
     Active Substance: CISPLATIN
     Indication: GASTRIC CANCER STAGE III
     Dosage: 60 MG/M2, Q3WKS, ON DAY 1
     Route: 065
     Dates: start: 20110614
  5. IRINOTECAN [Suspect]
     Active Substance: IRINOTECAN
     Indication: GASTRIC CANCER STAGE III
     Dosage: 150 MG/M2, FORTNIGHT
     Route: 065
     Dates: start: 20090907
  6. CAPECITABINE. [Concomitant]
     Active Substance: CAPECITABINE
     Indication: GASTRIC CANCER STAGE III
     Dosage: 2400 MG, DAILY
     Route: 065

REACTIONS (4)
  - Disease progression [Unknown]
  - Nausea [Unknown]
  - Drug effect incomplete [Unknown]
  - Decreased appetite [Unknown]
